FAERS Safety Report 8856764 (Version 1)
Quarter: 2012Q4

REPORT INFORMATION
  Report Type: 
  Country: US (occurrence: US)
  Receive Date: 20121023
  Receipt Date: 20121023
  Transmission Date: 20130627
  Serious: No
  Sender: FDA-Public Use
  Company Number: US-AMGEN-USASP2012056019

PATIENT
  Age: 57 Year
  Sex: Male
  Weight: 60.77 kg

DRUGS (6)
  1. ENBREL [Suspect]
     Indication: PRODUCT USED FOR UNKNOWN INDICATION
     Dosage: 50 mg, qwk
     Route: 058
  2. PREDNISONE [Concomitant]
     Dosage: UNK
     Route: 048
  3. PLAQUENIL                          /00072602/ [Concomitant]
     Dosage: UNK
     Route: 048
  4. OMEPRAZOLE [Concomitant]
     Dosage: 10 mg, UNK
     Route: 048
  5. TYLENOL /00020001/ [Concomitant]
     Dosage: 650 mg, UNK, 8 HR
     Route: 048
  6. MORTIN [Concomitant]
     Dosage: 400 mg, UNK
     Route: 048

REACTIONS (1)
  - Therapeutic response decreased [Unknown]
